FAERS Safety Report 24328591 (Version 2)
Quarter: 2024Q4

REPORT INFORMATION
  Report Type: Spontaneous
  Country: DE (occurrence: DE)
  Receive Date: 20240917
  Receipt Date: 20241218
  Transmission Date: 20250115
  Serious: Yes (Other)
  Sender: ALEXION PHARMACEUTICALS
  Company Number: 2024A210176

PATIENT
  Age: 39 Year

DRUGS (4)
  1. OLAPARIB [Suspect]
     Active Substance: OLAPARIB
     Indication: Breast cancer
     Dosage: UNK
  2. OLAPARIB [Suspect]
     Active Substance: OLAPARIB
     Dosage: UNK
     Route: 048
  3. OLAPARIB [Suspect]
     Active Substance: OLAPARIB
     Dosage: UNK
  4. OLAPARIB [Suspect]
     Active Substance: OLAPARIB
     Dosage: UNK
     Route: 048

REACTIONS (5)
  - B precursor type acute leukaemia [Recovered/Resolved]
  - N-ras gene mutation [Recovered/Resolved]
  - Breast cancer recurrent [Unknown]
  - Malignant neoplasm progression [Unknown]
  - Acute lymphocytic leukaemia [Unknown]
